FAERS Safety Report 14795602 (Version 1)
Quarter: 2018Q2

REPORT INFORMATION
  Report Type: Report from Study
  Country: US (occurrence: US)
  Receive Date: 20180423
  Receipt Date: 20180423
  Transmission Date: 20180711
  Serious: Yes (Other)
  Sender: FDA-Public Use
  Company Number: US-AMGEN-USASL2018053858

PATIENT
  Age: 70 Year
  Sex: Female

DRUGS (1)
  1. REPATHA [Suspect]
     Active Substance: EVOLOCUMAB
     Indication: HYPERCHOLESTEROLAEMIA
     Dosage: 140 MG, Q2WK
     Route: 065

REACTIONS (7)
  - Headache [Unknown]
  - Back pain [Unknown]
  - Chest pain [Unknown]
  - Impaired gastric emptying [Unknown]
  - Irritable bowel syndrome [Unknown]
  - Neck pain [Unknown]
  - Musculoskeletal pain [Unknown]
